FAERS Safety Report 5308270-2 (Version None)
Quarter: 2007Q1

REPORT INFORMATION
  Report Type: 
  Country: None (occurrence: None)
  Receive Date: 20070201
  Receipt Date: 20061226
  Transmission Date: 20070707
  Serious: No
  Sender: FDA-Public Use
  Company Number: 2006PV027347

PATIENT
  Age: 54 Year
  Sex: Female
  Weight: 80.7403 kg

DRUGS (7)
  1. BYETTA [Suspect]
     Indication: DIABETES MELLITUS NON-INSULIN-DEPENDENT
     Dosage: SEE IMAGE
     Route: 058
     Dates: start: 20060223, end: 20060301
  2. BYETTA [Suspect]
     Indication: DIABETES MELLITUS NON-INSULIN-DEPENDENT
     Dosage: SEE IMAGE
     Route: 058
     Dates: start: 20060301
  3. METFORMIN HCL [Concomitant]
  4. SYNTHROID [Concomitant]
  5. CYTOMEL [Concomitant]
  6. METFORMIN HCL [Concomitant]
  7. AVANDIA [Concomitant]

REACTIONS (7)
  - BALANCE DISORDER [None]
  - CONSTIPATION [None]
  - GAIT DISTURBANCE [None]
  - HYPOAESTHESIA [None]
  - INJECTION SITE RASH [None]
  - MUSCULAR WEAKNESS [None]
  - NAUSEA [None]
